FAERS Safety Report 16439667 (Version 1)
Quarter: 2019Q2

REPORT INFORMATION
  Report Type: Spontaneous
  Country: US (occurrence: US)
  Receive Date: 20190617
  Receipt Date: 20190617
  Transmission Date: 20190711
  Serious: No
  Sender: FDA-Public Use
  Company Number: US-BAYER-2019-115827

PATIENT
  Age: 97 Year
  Sex: Female
  Weight: 45 kg

DRUGS (10)
  1. VITAMIN D [VITAMIN D NOS] [Concomitant]
     Active Substance: VITAMIN D NOS
  2. DIOVAN [Concomitant]
     Active Substance: VALSARTAN
  3. VITAMIN B12 [VITAMIN B12 NOS] [Concomitant]
     Active Substance: CYANOCOBALAMIN
  4. MILK OF MAGNESIA ORIGINAL [Suspect]
     Active Substance: MAGNESIUM HYDROXIDE
  5. B-COMPLEX [VITAMIN B NOS] [Concomitant]
     Active Substance: VITAMINS
  6. MIRALAX [Suspect]
     Active Substance: POLYETHYLENE GLYCOL 3350
     Indication: INTESTINAL OBSTRUCTION
     Dosage: 1 DF, QD
     Route: 048
  7. PROBIOTIC COMPLEX [Concomitant]
  8. DILTIAZEM. [Concomitant]
     Active Substance: DILTIAZEM
  9. ELIQUIS [Concomitant]
     Active Substance: APIXABAN
  10. SPIRONOLACTONE. [Concomitant]
     Active Substance: SPIRONOLACTONE

REACTIONS (3)
  - Asthenia [Unknown]
  - Product use in unapproved indication [Unknown]
  - Off label use [Unknown]
